FAERS Safety Report 6616440-6 (Version None)
Quarter: 2010Q1

REPORT INFORMATION
  Report Type: 
  Country: None (occurrence: None)
  Receive Date: 20100305
  Receipt Date: 20100303
  Transmission Date: 20100710
  Serious: Yes (Death, Other)
  Sender: FDA-Public Use
  Company Number: PHHY2010BR02427

PATIENT
  Age: 87 Year
  Sex: Male

DRUGS (9)
  1. EXELON [Suspect]
     Indication: DEMENTIA ALZHEIMER'S TYPE
     Dosage: 1.5 MG,UNK
  2. EXELON [Suspect]
     Dosage: 3 MG,UNK
  3. EXELON [Suspect]
     Dosage: 4.5 MG DAILY (1 TABLET OF 3 MG IN THE MORNING AND 1 TABLET OF 1.5 MG AT NIGHT)
  4. GALVUS MET COMBIPACK [Suspect]
     Dosage: 50/850MG, UNK
  5. GALVUS MET COMBIPACK [Suspect]
     Dosage: UNK
  6. GALVUS MET [Suspect]
     Dosage: 50/850MG, 1 DF, BID
     Route: 048
  7. INSULIN [Concomitant]
     Dosage: UNK,UNK
  8. DILOR-G [Concomitant]
     Indication: BLOOD URIC ACID
     Dosage: UNK,UNK
  9. VYTORIN [Concomitant]
     Indication: BLOOD CHOLESTEROL

REACTIONS (6)
  - DEATH [None]
  - DIABETES MELLITUS [None]
  - HEPATIC NEOPLASM [None]
  - HYPERTENSION [None]
  - PROSTATE CANCER [None]
  - SHOCK [None]
